FAERS Safety Report 5648252-4 (Version None)
Quarter: 2008Q1

REPORT INFORMATION
  Report Type: 
  Country: None (occurrence: None)
  Receive Date: 20080131
  Receipt Date: 20071015
  Transmission Date: 20080703
  Serious: No
  Sender: FDA-Public Use
  Company Number: US200708002377

PATIENT
  Age: 52 Year
  Sex: Female
  Weight: 65.8 kg

DRUGS (1)
  1. BYETTA [Suspect]
     Indication: TYPE 2 DIABETES MELLITUS
     Dosage: 5 UG, 2/D, SUBCUTANEOUS ; 10 UG, 2/D, SUBCUTANEOUS
     Route: 058

REACTIONS (3)
  - ENDOMETRIAL ATROPHY [None]
  - TENDERNESS [None]
  - WEIGHT DECREASED [None]
